FAERS Safety Report 5742196-5 (Version None)
Quarter: 2008Q2

REPORT INFORMATION
  Report Type: 
  Country: None (occurrence: None)
  Receive Date: 20080513
  Receipt Date: 20080213
  Transmission Date: 20081010
  Serious: No
  Sender: FDA-Public Use
  Company Number: WAES 0802USA03108

PATIENT

DRUGS (1)
  1. ZOLINZA [Suspect]

REACTIONS (1)
  - UNEVALUABLE EVENT [None]
